FAERS Safety Report 24911913 (Version 1)
Quarter: 2025Q1

REPORT INFORMATION
  Report Type: Spontaneous
  Country: US (occurrence: US)
  Receive Date: 20250131
  Receipt Date: 20250131
  Transmission Date: 20250409
  Serious: No
  Sender: MERCK
  Company Number: US-009507513-2501USA009411

PATIENT
  Sex: Female
  Weight: 36.7 kg

DRUGS (38)
  1. WINREVAIR [Suspect]
     Active Substance: SOTATERCEPT-CSRK
     Indication: Product used for unknown indication
  2. TYVASO [Suspect]
     Active Substance: TREPROSTINIL
     Indication: Pulmonary arterial hypertension
     Dosage: 108 MICROGRAM, QID
     Dates: start: 20230209
  3. ADEMPAS [Concomitant]
     Active Substance: RIOCIGUAT
  4. VALACYCLOVIR HYDROCHLORIDE [Concomitant]
     Active Substance: VALACYCLOVIR HYDROCHLORIDE
  5. GAS-X [Concomitant]
     Active Substance: DIMETHICONE
  6. VITAMIN C [Concomitant]
     Active Substance: ASCORBIC ACID
  7. ANORO ELLIPTA [Concomitant]
     Active Substance: UMECLIDINIUM BROMIDE\VILANTEROL TRIFENATATE
  8. IBANDRONATE SODIUM [Concomitant]
     Active Substance: IBANDRONATE SODIUM
  9. PREDNISONE [Concomitant]
     Active Substance: PREDNISONE
  10. LUNESTA [Concomitant]
     Active Substance: ESZOPICLONE
  11. SYNTHROID [Concomitant]
     Active Substance: LEVOTHYROXINE SODIUM
  12. IMODIUM [Concomitant]
     Active Substance: LOPERAMIDE HYDROCHLORIDE
  13. PROLIA [Concomitant]
     Active Substance: DENOSUMAB
  14. TRIAMCINOLONE ACETONIDE [Concomitant]
     Active Substance: TRIAMCINOLONE ACETONIDE
  15. COLLAGENASE SANTYL [Concomitant]
     Active Substance: COLLAGENASE CLOSTRIDIUM HISTOLYTICUM
  16. XARELTO [Concomitant]
     Active Substance: RIVAROXABAN
  17. CLOBETASOL [Concomitant]
     Active Substance: CLOBETASOL
  18. LORAZEPAM [Concomitant]
     Active Substance: LORAZEPAM
  19. HYDROCHLOROTHIAZIDE\TRIAMTERENE [Concomitant]
     Active Substance: HYDROCHLOROTHIAZIDE\TRIAMTERENE
  20. BIOTIN [Concomitant]
     Active Substance: BIOTIN
  21. LASIX [Concomitant]
     Active Substance: FUROSEMIDE
  22. VITAMIN D3 [Concomitant]
     Active Substance: CHOLECALCIFEROL
  23. CIALIS [Concomitant]
     Active Substance: TADALAFIL
  24. KLOR-CON M20 [Concomitant]
     Active Substance: POTASSIUM CHLORIDE
  25. NEXIUM [Concomitant]
     Active Substance: ESOMEPRAZOLE MAGNESIUM
  26. CELLCEPT [Concomitant]
     Active Substance: MYCOPHENOLATE MOFETIL
  27. TRAMADOL HYDROCHLORIDE [Concomitant]
     Active Substance: TRAMADOL HYDROCHLORIDE
  28. AZELASTINE [Concomitant]
     Active Substance: AZELASTINE
  29. ASCORBIC ACID [Concomitant]
     Active Substance: ASCORBIC ACID
  30. ESTRADIOL [Concomitant]
     Active Substance: ESTRADIOL
  31. CALCIUM [Concomitant]
     Active Substance: CALCIUM
  32. SPIRONOLACTONE [Concomitant]
     Active Substance: SPIRONOLACTONE
  33. OXYGEN [Concomitant]
     Active Substance: OXYGEN
  34. CALCIUM [Concomitant]
     Active Substance: CALCIUM
  35. RISEDRONATE SODIUM [Concomitant]
     Active Substance: RISEDRONATE SODIUM
  36. TYLENOL [Concomitant]
     Active Substance: ACETAMINOPHEN
  37. ESCITALOPRAM [Concomitant]
     Active Substance: ESCITALOPRAM OXALATE
  38. TADALAFIL [Concomitant]
     Active Substance: TADALAFIL

REACTIONS (1)
  - Feeling abnormal [Unknown]
